FAERS Safety Report 18917164 (Version 4)
Quarter: 2021Q2

REPORT INFORMATION
  Report Type: Spontaneous
  Country: JP (occurrence: JP)
  Receive Date: 20210219
  Receipt Date: 20210519
  Transmission Date: 20210717
  Serious: Yes (Death, Hospitalization, Other)
  Sender: FDA-Public Use
  Company Number: JP-GILEAD-2021-0517748

PATIENT
  Age: 69 Year
  Sex: Male
  Weight: 50.9 kg

DRUGS (13)
  1. VEKLURY [Suspect]
     Active Substance: REMDESIVIR
     Indication: COVID-19
     Dosage: 200 MG, QD
     Route: 041
     Dates: start: 20210119, end: 20210119
  2. VEKLURY [Suspect]
     Active Substance: REMDESIVIR
     Dosage: 100 MG, QD
     Route: 041
     Dates: start: 20210120, end: 20210123
  3. ALBUMIN [Concomitant]
     Active Substance: ALBUMIN HUMAN
  4. ZITHROMAC [Concomitant]
     Active Substance: AZITHROMYCIN DIHYDRATE
     Dosage: UNK
     Dates: start: 20210119, end: 20210121
  5. HEPARIN [Concomitant]
     Active Substance: HEPARIN SODIUM
  6. TRANEXAMIC ACID. [Concomitant]
     Active Substance: TRANEXAMIC ACID
  7. NEXIUM [Concomitant]
     Active Substance: ESOMEPRAZOLE MAGNESIUM
  8. CEFTRIAXONE SODIUM. [Concomitant]
     Active Substance: CEFTRIAXONE SODIUM
     Dosage: UNK
     Dates: start: 20210119, end: 20210201
  9. CARBAZOCHROME SULFONATE NA [Concomitant]
  10. GASTER [Concomitant]
     Active Substance: FAMOTIDINE
  11. DECADRON [Concomitant]
     Active Substance: DEXAMETHASONE
  12. FYCOMPA [Concomitant]
     Active Substance: PERAMPANEL
  13. E KEPPRA [Concomitant]
     Active Substance: LEVETIRACETAM

REACTIONS (2)
  - Acute kidney injury [Recovering/Resolving]
  - COVID-19 pneumonia [Fatal]

NARRATIVE: CASE EVENT DATE: 2021
